FAERS Safety Report 5318439-9 (Version None)
Quarter: 2007Q2

REPORT INFORMATION
  Report Type: 
  Country: None (occurrence: None)
  Receive Date: 20070430
  Receipt Date: 20070419
  Transmission Date: 20071010
  Serious: Yes (Other)
  Sender: FDA-Public Use
  Company Number: OSCN-NO-0608S-0236

PATIENT
  Age: 76 Year
  Sex: Male

DRUGS (14)
  1. OMNISCAN [Suspect]
     Indication: ISCHAEMIA
     Dosage: SEE IMAGE
     Route: 042
     Dates: start: 20041101, end: 20041101
  2. OMNISCAN [Suspect]
     Indication: ISCHAEMIA
     Dosage: SEE IMAGE
     Route: 042
     Dates: start: 20050120, end: 20050120
  3. OMNISCAN [Suspect]
     Indication: ISCHAEMIA
     Dosage: SEE IMAGE
     Route: 042
     Dates: start: 20050416, end: 20050416
  4. ASPIRIN [Concomitant]
  5. BISOPROLOL FUMARATE [Concomitant]
  6. FAMOTIDINE [Concomitant]
  7. FENOFIBRATE [Concomitant]
  8. FERROUS FUMARATE [Concomitant]
  9. METOCLOPRAMIDE [Concomitant]
  10. SIMVASTATIN [Concomitant]
  11. IPRATROPIUM INHALER [Concomitant]
  12. SALBUTAMOL INHALER [Concomitant]
  13. CLINDAMYCIN [Concomitant]
  14. TRAMADOL HCL [Concomitant]

REACTIONS (8)
  - GANGRENE [None]
  - GENERAL PHYSICAL HEALTH DETERIORATION [None]
  - HAEMODIALYSIS [None]
  - INFECTION [None]
  - LEG AMPUTATION [None]
  - NEPHROGENIC FIBROSING DERMOPATHY [None]
  - PNEUMONIA [None]
  - SEPSIS [None]
